FAERS Safety Report 7648814-9 (Version None)
Quarter: 2011Q3

REPORT INFORMATION
  Report Type: 
  Country: None (occurrence: None)
  Receive Date: 20110801
  Receipt Date: 20110725
  Transmission Date: 20111222
  Serious: Yes (Other)
  Sender: FDA-Public Use
  Company Number: IE-PFIZER INC-2011169675

PATIENT
  Age: 37 Year
  Sex: Female

DRUGS (2)
  1. SULFASALAZINE [Suspect]
     Indication: CROHN'S DISEASE
     Dosage: UNK
     Dates: start: 19980101
  2. SULFASALAZINE [Suspect]
     Dosage: 500 MG, 2X/DAY
     Dates: end: 20110501

REACTIONS (13)
  - CHEST PAIN [None]
  - INFLUENZA [None]
  - CONTUSION [None]
  - MALAISE [None]
  - FEELING ABNORMAL [None]
  - CROHN'S DISEASE [None]
  - ASTHENIA [None]
  - HAEMATEMESIS [None]
  - NAIL DISCOLOURATION [None]
  - COUGH [None]
  - HAEMATOCHEZIA [None]
  - STRESS [None]
  - DRUG INEFFECTIVE [None]
